FAERS Safety Report 15256158 (Version 1)
Quarter: 2018Q3

REPORT INFORMATION
  Report Type: Spontaneous
  Country: FR (occurrence: FR)
  Receive Date: 20180808
  Receipt Date: 20180808
  Transmission Date: 20181010
  Serious: Yes (Other)
  Sender: FDA-Public Use
  Company Number: FR-PFIZER INC-2018314686

PATIENT
  Age: 69 Year
  Sex: Male
  Weight: 95 kg

DRUGS (6)
  1. FLUOROURACILE ACCORD [Suspect]
     Active Substance: FLUOROURACIL
     Indication: OESOPHAGEAL ADENOCARCINOMA
     Dosage: 4.4 G, UNK
     Route: 041
     Dates: start: 20180410, end: 20180424
  2. OXALIPLATIN. [Suspect]
     Active Substance: OXALIPLATIN
     Indication: OESOPHAGEAL ADENOCARCINOMA
     Dosage: 170 MG, UNK
     Route: 041
     Dates: start: 20180410, end: 20180424
  3. SOLUPRED [Concomitant]
  4. ZOPHREN [Concomitant]
     Active Substance: ONDANSETRON
  5. DOCETAXEL. [Suspect]
     Active Substance: DOCETAXEL
     Indication: OESOPHAGEAL ADENOCARCINOMA
     Dosage: 85 MG, UNK
     Route: 041
     Dates: start: 20180410, end: 20180424
  6. FOLINATE DE CALCIUM SANDOZ [Suspect]
     Active Substance: LEUCOVORIN CALCIUM
     Indication: OESOPHAGEAL ADENOCARCINOMA
     Dosage: 400 MG, UNK
     Route: 041
     Dates: start: 20180410, end: 20180424

REACTIONS (1)
  - Toxic skin eruption [Recovered/Resolved]

NARRATIVE: CASE EVENT DATE: 20180425
